FAERS Safety Report 4394214-7 (Version None)
Quarter: 2004Q3

REPORT INFORMATION
  Report Type: 
  Country: None (occurrence: None)
  Receive Date: 20040706
  Receipt Date: 20040618
  Transmission Date: 20050211
  Serious: Yes (Life-Threatening, Hospitalization)
  Sender: FDA-Public Use
  Company Number: WAES 0406USA01782

PATIENT
  Age: 75 Year
  Sex: Male
  Weight: 61.6892 kg

DRUGS (5)
  1. AQUAMEPHYTON [Suspect]
     Indication: DRUG USE FOR UNKNOWN INDICATION
     Dosage: 10MG, DAILY; IV
     Route: 042
     Dates: start: 20040226, end: 20040226
  2. FLUOROURACIL INJ [Concomitant]
  3. LEUCOVORIN CALCIUM [Concomitant]
  4. BLINDED THERAPY [Concomitant]
  5. OXALIPLATIN [Concomitant]

REACTIONS (3)
  - COMA [None]
  - HYPOTENSION [None]
  - RESPIRATORY DISTRESS [None]
